FAERS Safety Report 15407797 (Version 1)
Quarter: 2018Q3

REPORT INFORMATION
  Report Type: Report from Study
  Country: GB (occurrence: GB)
  Receive Date: 20180920
  Receipt Date: 20180920
  Transmission Date: 20181010
  Serious: Yes (Other)
  Sender: FDA-Public Use
  Company Number: GB-PFIZER INC-2018374165

PATIENT
  Sex: Female

DRUGS (23)
  1. LOSARTAN POTASSIUM. [Concomitant]
     Active Substance: LOSARTAN POTASSIUM
     Dosage: 50 MG, 1X/DAY
     Route: 048
     Dates: start: 20160506
  2. DENOSUMAB [Concomitant]
     Active Substance: DENOSUMAB
     Indication: BONE DISORDER
     Dosage: 120 MG, UNK
     Route: 058
     Dates: start: 20160226
  3. LANSOPRAZOLE. [Concomitant]
     Active Substance: LANSOPRAZOLE
     Indication: PROPHYLAXIS
     Dosage: 30 UG, UNK
     Route: 048
     Dates: start: 20160324
  4. ZOMORPH [Concomitant]
     Active Substance: MORPHINE SULFATE
     Dosage: 20 MG, 1X/DAY
     Route: 048
     Dates: start: 20160311
  5. DOCETAXEL. [Suspect]
     Active Substance: DOCETAXEL
     Indication: HER-2 POSITIVE BREAST CANCER
     Dosage: 148 MG, EVERY 3 WEEKS
     Route: 042
     Dates: start: 20160304, end: 20160617
  6. LOPERAMIDE [Concomitant]
     Active Substance: LOPERAMIDE
     Dosage: 2 MG, UNK
     Route: 048
     Dates: start: 20160302
  7. DEXAMETHASONE. [Concomitant]
     Active Substance: DEXAMETHASONE
     Dosage: 16 MG, 1X/DAY
     Route: 048
     Dates: start: 20160302
  8. CALCICHEW D3 FORTE [Concomitant]
     Active Substance: CALCIUM\CHOLECALCIFEROL
     Dosage: 2 DF, 1X/DAY
     Route: 048
     Dates: start: 20160225
  9. NAPROXEN. [Concomitant]
     Active Substance: NAPROXEN
     Dosage: 1500 MG, 1X/DAY
     Route: 048
  10. PREGABALIN. [Concomitant]
     Active Substance: PREGABALIN
     Dosage: 150 MG, 1X/DAY
     Route: 048
     Dates: start: 20160307
  11. CHLORHEXIDINE HYDROCHLORIDE/NEOMYCIN SULFATE [Concomitant]
     Dosage: OINTMENT, CHLORHEXIDINE HYDROCHLORIDE 0.1% AND NEOMYCIN SULPHATE 0.5%
     Route: 061
     Dates: start: 20160324
  12. DOMPERIDONE [Concomitant]
     Active Substance: DOMPERIDONE
     Dosage: 10 MG, UNK
     Route: 048
     Dates: start: 20160302
  13. PEGFILGRASTIM [Concomitant]
     Active Substance: PEGFILGRASTIM
     Dosage: 6 MG, UNK
     Route: 058
     Dates: start: 20160302
  14. COCODAMOL [Concomitant]
     Active Substance: ACETAMINOPHEN\CODEINE PHOSPHATE
     Dosage: 120 MG, 1X/DAY
     Route: 048
     Dates: end: 201603
  15. TRASTUZUMAB. [Suspect]
     Active Substance: TRASTUZUMAB
     Indication: HER-2 POSITIVE BREAST CANCER
     Dosage: 900 MG, EVERY 3 WEEKS
     Route: 042
     Dates: start: 20160303
  16. PERTUZUMAB. [Suspect]
     Active Substance: PERTUZUMAB
     Indication: BREAST CANCER METASTATIC
     Dosage: 840 MG, EVERY 3 WEEKS
     Route: 042
     Dates: start: 20160303
  17. PARACETAMOL [Concomitant]
     Active Substance: ACETAMINOPHEN
     Dosage: 3 G, 1X/DAY
     Route: 048
     Dates: start: 20160316, end: 20160415
  18. LEVOMENTHOL [Concomitant]
     Active Substance: LEVOMENTHOL
     Dosage: 6 %, 1X/DAY
     Route: 061
     Dates: start: 20160307
  19. IBUPROFEN. [Concomitant]
     Active Substance: IBUPROFEN
     Dosage: 1600 MG, 1X/DAY
     Route: 048
  20. ANUSOL HC [HYDROCORTISONE ACETATE] [Concomitant]
     Dosage: UNK
     Route: 061
     Dates: start: 20160324
  21. ORAMORPH [Concomitant]
     Active Substance: MORPHINE SULFATE
     Dosage: 10 MG, UNK
     Route: 048
  22. LIDOCAINE. [Concomitant]
     Active Substance: LIDOCAINE
     Dosage: 700 MG, 1X/DAY
     Route: 062
     Dates: start: 20160307
  23. METFORMIN [Concomitant]
     Active Substance: METFORMIN HYDROCHLORIDE
     Dosage: 850 MG, UNK
     Route: 048

REACTIONS (10)
  - Sciatica [Not Recovered/Not Resolved]
  - Skin discolouration [Not Recovered/Not Resolved]
  - Fatigue [Not Recovered/Not Resolved]
  - Nail bed tenderness [Not Recovered/Not Resolved]
  - Dysuria [Recovered/Resolved]
  - Neuropathy peripheral [Not Recovered/Not Resolved]
  - Localised infection [Not Recovered/Not Resolved]
  - Hypokalaemia [Not Recovered/Not Resolved]
  - Diarrhoea [Not Recovered/Not Resolved]
  - Anaemia [Recovering/Resolving]

NARRATIVE: CASE EVENT DATE: 20160315
